FAERS Safety Report 7412257-3 (Version None)
Quarter: 2011Q2

REPORT INFORMATION
  Report Type: 
  Country: None (occurrence: None)
  Receive Date: 20110413
  Receipt Date: 20110404
  Transmission Date: 20111010
  Serious: Yes (Other)
  Sender: FDA-Public Use
  Company Number: CA-ROCHE-709429

PATIENT
  Age: 46 Year
  Sex: Male
  Weight: 94 kg

DRUGS (15)
  1. FENOFIBRATE [Concomitant]
  2. TEMAZEPAM [Concomitant]
  3. ZOPICLONE [Concomitant]
  4. LAMIVUDINE [Suspect]
     Route: 048
  5. ACYCLOVIR [Concomitant]
  6. FUZEON [Suspect]
     Dosage: FORM: POWDER FOR SOLUTION
     Route: 058
  7. ISENTRESS [Suspect]
     Dosage: DURATION: 6 MONTHS
     Route: 048
  8. LAMIVUDINE [Suspect]
     Route: 048
  9. VIREAD [Suspect]
     Route: 048
  10. FOLIC ACID [Concomitant]
  11. VITAMIN E [Concomitant]
  12. LAMIVUDINE [Suspect]
     Route: 048
  13. INTELENCE [Suspect]
     Route: 048
  14. HYDROXYZINE [Concomitant]
  15. SULFAMETHOXAZOLE + TRIMETHOPRIM [Concomitant]

REACTIONS (7)
  - ALANINE AMINOTRANSFERASE INCREASED [None]
  - ASPIRATION BIOPSY [None]
  - HEPATITIS [None]
  - LYMPHADENOPATHY [None]
  - HEPATIC STEATOSIS [None]
  - ASPARTATE AMINOTRANSFERASE INCREASED [None]
  - HEPATIC ENZYME INCREASED [None]
